FAERS Safety Report 6707058-5 (Version None)
Quarter: 2010Q2

REPORT INFORMATION
  Report Type: 
  Country: None (occurrence: None)
  Receive Date: 20100503
  Receipt Date: 20100416
  Transmission Date: 20101027
  Serious: No
  Sender: FDA-Public Use
  Company Number: US-ROXANE LABORATORIES, INC.-2010-RO-00436RO

PATIENT

DRUGS (1)
  1. PROPRANOLOL [Suspect]
     Dates: start: 20100101

REACTIONS (1)
  - THERAPEUTIC RESPONSE INCREASED [None]
